FAERS Safety Report 19128948 (Version 2)
Quarter: 2021Q2

REPORT INFORMATION
  Report Type: Spontaneous
  Country: JP (occurrence: JP)
  Receive Date: 20210413
  Receipt Date: 20210429
  Transmission Date: 20210717
  Serious: Yes (Other)
  Sender: FDA-Public Use
  Company Number: JP-JNJFOC-20210420438

PATIENT
  Age: 80 Year
  Sex: Male

DRUGS (3)
  1. RISPERDAL [Suspect]
     Active Substance: RISPERIDONE
     Indication: SCHIZOPHRENIA
     Route: 048
  2. BENZALIN [NITRAZEPAM] [Interacting]
     Active Substance: NITRAZEPAM
     Dosage: DOSE UNKNOWN, DECREASED
     Route: 048
     Dates: start: 2021
  3. BENZALIN [NITRAZEPAM] [Interacting]
     Active Substance: NITRAZEPAM
     Indication: PRODUCT USED FOR UNKNOWN INDICATION
     Dosage: DOSE UNKNOWN
     Route: 048

REACTIONS (4)
  - Drug interaction [Unknown]
  - Physical deconditioning [Unknown]
  - Poor quality sleep [Unknown]
  - Apnoea [Unknown]

NARRATIVE: CASE EVENT DATE: 2021
